FAERS Safety Report 12876033 (Version 1)
Quarter: 2016Q4

REPORT INFORMATION
  Report Type: Spontaneous
  Country: US (occurrence: US)
  Receive Date: 20161020
  Receipt Date: 20161020
  Transmission Date: 20170207
  Serious: Yes (Hospitalization)
  Sender: FDA-Public Use
  Company Number: None

PATIENT
  Age: 68 Year
  Sex: Male

DRUGS (1)
  1. SENSIPAR [Suspect]
     Active Substance: CINACALCET HYDROCHLORIDE
     Indication: RENAL FAILURE
     Route: 048
     Dates: start: 20160427, end: 20160916

REACTIONS (4)
  - Vomiting projectile [None]
  - Weight decreased [None]
  - Decreased appetite [None]
  - Syncope [None]

NARRATIVE: CASE EVENT DATE: 20160916
